FAERS Safety Report 7157576-3 (Version None)
Quarter: 2010Q4

REPORT INFORMATION
  Report Type: 
  Country: None (occurrence: None)
  Receive Date: 20101214
  Receipt Date: 20100225
  Transmission Date: 20110411
  Serious: No
  Sender: FDA-Public Use
  Company Number: US-ASTRAZENECA-2010SE08307

PATIENT
  Age: 69 Year
  Sex: Male
  Weight: 61.2 kg

DRUGS (7)
  1. CRESTOR [Suspect]
     Route: 048
     Dates: start: 20100221
  2. AMLODIPINE [Concomitant]
     Indication: HYPERTENSION
  3. ATENOLOL [Concomitant]
     Indication: HYPERTENSION
  4. METFORMIN [Concomitant]
     Indication: DIABETES MELLITUS
  5. SYNTHROID [Concomitant]
     Indication: THYROID DISORDER
  6. LUTEIN [Concomitant]
  7. ASPIRIN [Concomitant]

REACTIONS (1)
  - COUGH [None]
